FAERS Safety Report 13187486 (Version 1)
Quarter: 2017Q1

REPORT INFORMATION
  Report Type: Spontaneous
  Country: US (occurrence: US)
  Receive Date: 20170206
  Receipt Date: 20170206
  Transmission Date: 20170428
  Serious: No
  Sender: FDA-Public Use
  Company Number: US-PFIZER INC-2017045415

PATIENT
  Sex: Male

DRUGS (1)
  1. VIAGRA [Suspect]
     Active Substance: SILDENAFIL CITRATE
     Dosage: 100MG, TABLETS, BY MOUTH, ONCE A WEEK
     Route: 048

REACTIONS (6)
  - Flushing [Unknown]
  - Intentional product misuse [Unknown]
  - Photophobia [Unknown]
  - Suspected counterfeit product [Unknown]
  - Drug ineffective [Unknown]
  - Eye disorder [Unknown]

NARRATIVE: CASE EVENT DATE: 201612
